FAERS Safety Report 21350735 (Version 1)
Quarter: 2022Q3

REPORT INFORMATION
  Report Type: Spontaneous
  Country: US (occurrence: US)
  Receive Date: 20220919
  Receipt Date: 20220919
  Transmission Date: 20221027
  Serious: No
  Sender: FDA-Public Use
  Company Number: US-PROGENICS PHARMACEUTICALS/LANTHEUS HOLDINGS-LMI-2022-00482

PATIENT
  Age: 19 Year
  Sex: Female
  Weight: 50 kg

DRUGS (1)
  1. AZEDRA [Suspect]
     Active Substance: IOBENGUANE I-131
     Indication: Phaeochromocytoma
     Dosage: 2.5 MILLICURIE
     Route: 042
     Dates: start: 20220328, end: 20220328

REACTIONS (1)
  - Product administration error [Unknown]

NARRATIVE: CASE EVENT DATE: 20220328
